FAERS Safety Report 8289410-2 (Version None)
Quarter: 2012Q2

REPORT INFORMATION
  Report Type: 
  Country: None (occurrence: None)
  Receive Date: 20120417
  Receipt Date: 20120406
  Transmission Date: 20120825
  Serious: Yes (Death)
  Sender: FDA-Public Use
  Company Number: US-CELGENEUS-163-21880-12032550

PATIENT
  Sex: Female

DRUGS (3)
  1. REVLIMID [Suspect]
     Indication: LYMPHOMA
     Dosage: 10 MILLIGRAM
     Route: 048
     Dates: start: 20120101
  2. WARFARIN SODIUM [Concomitant]
     Route: 065
  3. PREDNISONE TAB [Concomitant]
     Route: 065

REACTIONS (1)
  - MANTLE CELL LYMPHOMA [None]
